FAERS Safety Report 12304166 (Version 1)
Quarter: 2016Q2

REPORT INFORMATION
  Report Type: Spontaneous
  Country: US (occurrence: US)
  Receive Date: 20160426
  Receipt Date: 20160426
  Transmission Date: 20160815
  Serious: No
  Sender: FDA-Public Use
  Company Number: US-JNJFOC-20160313924

PATIENT
  Sex: Female
  Weight: 58.97 kg

DRUGS (1)
  1. CONCERTA [Suspect]
     Active Substance: METHYLPHENIDATE HYDROCHLORIDE
     Indication: ATTENTION DEFICIT/HYPERACTIVITY DISORDER
     Route: 048
     Dates: start: 2015

REACTIONS (7)
  - Mood swings [Not Recovered/Not Resolved]
  - Soliloquy [Not Recovered/Not Resolved]
  - Dysarthria [Not Recovered/Not Resolved]
  - Crying [Not Recovered/Not Resolved]
  - Adverse event [Unknown]
  - Decreased appetite [Unknown]
  - Gait disturbance [Not Recovered/Not Resolved]

NARRATIVE: CASE EVENT DATE: 2016
